FAERS Safety Report 4279647-1 (Version None)
Quarter: 2004Q1

REPORT INFORMATION
  Report Type: 
  Country: None (occurrence: None)
  Receive Date: 20040126
  Receipt Date: 20040126
  Transmission Date: 20041129
  Serious: Yes (Hospitalization)
  Sender: FDA-Public Use
  Company Number: None

PATIENT
  Age: 62 Year
  Sex: Male
  Weight: 98.2 kg

DRUGS (1)
  1. MORPHINE [Suspect]
     Indication: ANGIOPATHY
     Dosage: 30 MG Q 12 H
     Dates: start: 20031020, end: 20031022

REACTIONS (2)
  - LETHARGY [None]
  - SOMNOLENCE [None]
